FAERS Safety Report 7109787-0 (Version None)
Quarter: 2010Q4

REPORT INFORMATION
  Report Type: 
  Country: None (occurrence: None)
  Receive Date: 20101118
  Receipt Date: 20101104
  Transmission Date: 20110411
  Serious: Yes (Hospitalization)
  Sender: FDA-Public Use
  Company Number: FR-RANBAXY-2010RR-39475

PATIENT
  Age: 79 Year
  Sex: Male

DRUGS (15)
  1. TAVANIC [Suspect]
     Indication: LUNG INFECTION
     Dosage: 500 MG, UNK
     Route: 048
     Dates: start: 20101005, end: 20101008
  2. TAVANIC [Suspect]
     Dosage: 250 MG, UNK
     Route: 048
     Dates: start: 20101009, end: 20101011
  3. AMPICILLIN SODIUM/SULBACTAM SODIUM [Suspect]
     Indication: LUNG INFECTION
     Dosage: 1 G, TID
     Route: 042
     Dates: start: 20101002, end: 20101008
  4. CALCIPARINE [Concomitant]
     Indication: LUNG DISORDER
     Dosage: UNK
     Dates: start: 20101002, end: 20101009
  5. PARACETAMOL [Concomitant]
     Dosage: UNK
     Route: 042
     Dates: start: 20101008, end: 20101009
  6. RISORDAN [Concomitant]
     Indication: PRODUCT USED FOR UNKNOWN INDICATION
     Dosage: UNK
  7. ALLOPURINOL [Concomitant]
  8. ROSUVASTATIN CALCIUM [Concomitant]
  9. PERINDOPRIL [Concomitant]
  10. PLAVIX [Concomitant]
  11. NITROGLYCERIN [Concomitant]
  12. ESOMEPRAZOLE [Concomitant]
  13. LASIX [Concomitant]
  14. LAROXYL [Concomitant]
  15. ROHYPNOL [Concomitant]

REACTIONS (2)
  - HEPATITIS CHOLESTATIC [None]
  - MEDICATION ERROR [None]
